FAERS Safety Report 8324465-8 (Version None)
Quarter: 2012Q2

REPORT INFORMATION
  Report Type: 
  Country: None (occurrence: None)
  Receive Date: 20120501
  Receipt Date: 20120424
  Transmission Date: 20120825
  Serious: No
  Sender: FDA-Public Use
  Company Number: US-PFIZER INC-2012071400

PATIENT
  Sex: Female
  Weight: 56.7 kg

DRUGS (1)
  1. EFFEXOR XR [Suspect]
     Indication: DEPRESSION
     Dosage: 150 MG AND 75 MG CAPSULE ONCE A DAY
     Route: 048
     Dates: start: 20060101

REACTIONS (2)
  - NASOPHARYNGITIS [None]
  - VITAMIN D DECREASED [None]
